FAERS Safety Report 4514879-6 (Version None)
Quarter: 2004Q4

REPORT INFORMATION
  Report Type: 
  Country: None (occurrence: None)
  Receive Date: 20041126
  Receipt Date: 20041117
  Transmission Date: 20050328
  Serious: Yes (Hospitalization)
  Sender: FDA-Public Use
  Company Number: USA-2004-0016726

PATIENT
  Age: 58 Year
  Sex: Female

DRUGS (5)
  1. OXY CR TAB(OXY CR TAB)CR TABLET [Suspect]
     Indication: CANCER PAIN
     Dosage: SEE IMAGE
     Dates: start: 20040831, end: 20040903
  2. OXY CR TAB(OXY CR TAB)CR TABLET [Suspect]
     Indication: CANCER PAIN
     Dosage: SEE IMAGE
     Dates: start: 20040903, end: 20040904
  3. OXYCODONE HCL [Suspect]
     Indication: PAIN
     Dosage: 40 MG, PRN
     Dates: start: 20040831, end: 20040903
  4. TAMOXIFEN (TAMOXIFEN) [Concomitant]
  5. CELEBREX [Concomitant]

REACTIONS (6)
  - ADRENAL DISORDER [None]
  - ANOREXIA [None]
  - DRUG INEFFECTIVE [None]
  - FEELING ABNORMAL [None]
  - MALAISE [None]
  - PULMONARY EMBOLISM [None]
